FAERS Safety Report 5321924-7 (Version None)
Quarter: 2007Q2

REPORT INFORMATION
  Report Type: 
  Country: None (occurrence: None)
  Receive Date: 20070508
  Receipt Date: 20070508
  Transmission Date: 20071010
  Serious: Yes (Hospitalization)
  Sender: FDA-Public Use
  Company Number: None

PATIENT
  Age: 24 Year
  Sex: Female
  Weight: 43 kg

DRUGS (2)
  1. CIPROFLOXACIN [Suspect]
     Indication: SINUSITIS
  2. CIPROFLOXACIN [Suspect]
     Indication: URINARY TRACT INFECTION

REACTIONS (2)
  - SELF-MEDICATION [None]
  - STEVENS-JOHNSON SYNDROME [None]
